FAERS Safety Report 12654489 (Version 1)
Quarter: 2016Q3

REPORT INFORMATION
  Report Type: Spontaneous
  Country: US (occurrence: US)
  Receive Date: 20160816
  Receipt Date: 20160816
  Transmission Date: 20161109
  Serious: No
  Sender: FDA-Public Use
  Company Number: US-BEH-2016072457

PATIENT
  Sex: Female
  Weight: 82.99 kg

DRUGS (22)
  1. BERINERT [Suspect]
     Active Substance: HUMAN C1-ESTERASE INHIBITOR
     Indication: HEREDITARY ANGIOEDEMA
     Dosage: 2000 IU, PRN (500 UNIT VIAL)
     Route: 042
     Dates: start: 20160209
  2. METOLAZONE. [Concomitant]
     Active Substance: METOLAZONE
  3. SODIUM CHLORIDE. [Concomitant]
     Active Substance: SODIUM CHLORIDE
  4. FERROUS SULFATE. [Concomitant]
     Active Substance: FERROUS SULFATE
  5. GLIPIZIDE. [Concomitant]
     Active Substance: GLIPIZIDE
  6. GABAPENTIN. [Concomitant]
     Active Substance: GABAPENTIN
  7. HUMALOG [Concomitant]
     Active Substance: INSULIN LISPRO
  8. LOMOTIL [Concomitant]
     Active Substance: ATROPINE SULFATE\DIPHENOXYLATE HYDROCHLORIDE
  9. SPIRIVA [Concomitant]
     Active Substance: TIOTROPIUM BROMIDE MONOHYDRATE
  10. ROPINIROLE. [Concomitant]
     Active Substance: ROPINIROLE
  11. VITAMIN C [Concomitant]
     Active Substance: ASCORBIC ACID
  12. ATENOLOL. [Concomitant]
     Active Substance: ATENOLOL
  13. VITAMIN B [Concomitant]
     Active Substance: VITAMIN B
  14. LANTUS [Concomitant]
     Active Substance: INSULIN GLARGINE
  15. PANTOPRAZOLE [Concomitant]
     Active Substance: PANTOPRAZOLE SODIUM
  16. HYDROXYCHLOROQUINE [Concomitant]
     Active Substance: HYDROXYCHLOROQUINE
  17. ZOLOFT [Concomitant]
     Active Substance: SERTRALINE HYDROCHLORIDE
  18. HYDROCODONE [Concomitant]
     Active Substance: HYDROCODONE
  19. CHOLESTYRAMINE. [Concomitant]
     Active Substance: CHOLESTYRAMINE
  20. MAG-OX [Concomitant]
     Active Substance: MAGNESIUM OXIDE
  21. LEVOTHYROXINE. [Concomitant]
     Active Substance: LEVOTHYROXINE
  22. EPIPEN [Concomitant]
     Active Substance: EPINEPHRINE

REACTIONS (1)
  - Influenza [Unknown]
